FAERS Safety Report 9142535 (Version 1)
Quarter: 2013Q1

REPORT INFORMATION
  Report Type: Spontaneous
  Country: BR (occurrence: BR)
  Receive Date: 20130306
  Receipt Date: 20130306
  Transmission Date: 20140127
  Serious: Yes (Other)
  Sender: FDA-Public Use
  Company Number: BR-ACCORD-016636

PATIENT
  Age: 31 Year
  Sex: Female
  Weight: 63 kg

DRUGS (5)
  1. PACLITAXEL [Suspect]
     Indication: CHEMOTHERAPY
     Route: 042
     Dates: start: 20130116, end: 20130116
  2. DEXAMETHASONE [Concomitant]
     Route: 042
     Dates: start: 20130116, end: 20130116
  3. DIPHENHYDRAMINE [Concomitant]
     Route: 042
     Dates: start: 20130116, end: 20130116
  4. ONDANSETRON [Concomitant]
     Route: 042
     Dates: start: 20130116, end: 20130116
  5. RANITIDINE [Concomitant]
     Route: 042
     Dates: start: 20130116, end: 20130116

REACTIONS (2)
  - Back pain [Recovered/Resolved]
  - Erythema [Recovered/Resolved]
